FAERS Safety Report 5679271-X (Version None)
Quarter: 2008Q1

REPORT INFORMATION
  Report Type: 
  Country: None (occurrence: None)
  Receive Date: 20080325
  Receipt Date: 20080312
  Transmission Date: 20080703
  Serious: Yes (Hospitalization)
  Sender: FDA-Public Use
  Company Number: US-BAYER-200816788NA

PATIENT
  Age: 74 Year
  Sex: Female

DRUGS (9)
  1. CAMPATH [Suspect]
     Indication: CHRONIC LYMPHOCYTIC LEUKAEMIA RECURRENT
     Dosage: AS USED: 45 MG
     Route: 058
  2. CAMPATH [Suspect]
     Dosage: AS USED: 45 MG
     Route: 058
  3. CAMPATH [Suspect]
     Dosage: AS USED: 30 MG
     Route: 058
     Dates: start: 20070723
  4. RITUXIMAB [Suspect]
     Indication: CHRONIC LYMPHOCYTIC LEUKAEMIA RECURRENT
     Dosage: TOTAL DAILY DOSE: 375 MG/M2
     Route: 042
     Dates: start: 20070723
  5. ACYCLOVIR [Concomitant]
     Dosage: TOTAL DAILY DOSE: 1200 MG
     Route: 048
  6. MEPRON [Concomitant]
     Dosage: TOTAL DAILY DOSE: 1500 MG
     Route: 048
  7. ATENOLOL [Concomitant]
     Dosage: TOTAL DAILY DOSE: 12.5 MG
     Route: 048
  8. BIOTENE MOUTHWASH [Concomitant]
     Dosage: TOTAL DAILY DOSE: 60 ML
     Route: 048
  9. VALCYTE [Concomitant]
     Dosage: TOTAL DAILY DOSE: 1800 MG
     Route: 048

REACTIONS (4)
  - COLITIS [None]
  - CYTOMEGALOVIRUS INFECTION [None]
  - LUNG INFECTION PSEUDOMONAL [None]
  - LYMPHOPENIA [None]
